FAERS Safety Report 24996017 (Version 2)
Quarter: 2025Q3

REPORT INFORMATION
  Report Type: Spontaneous
  Country: US (occurrence: US)
  Receive Date: 20250221
  Receipt Date: 20250820
  Transmission Date: 20251021
  Serious: No
  Sender: CATALYST PHARMA
  Company Number: US-CATALYST PHARMACEUTICALS-US-CATA-24-01514

PATIENT
  Age: 12 Year
  Sex: Male
  Weight: 55.5 kg

DRUGS (21)
  1. AGAMREE [Suspect]
     Active Substance: VAMOROLONE
     Indication: Duchenne muscular dystrophy
     Dosage: 7.5 ML (300 MG) DAILY
     Route: 048
     Dates: start: 20240531
  2. TYLENOL [Concomitant]
     Active Substance: ACETAMINOPHEN
     Indication: Pain
     Route: 065
  3. EPLERENONE [Concomitant]
     Active Substance: EPLERENONE
     Indication: Product used for unknown indication
     Dosage: 50 MG DAILY
     Route: 048
     Dates: start: 20231002
  4. FLINSTONE^S OMEGA 3 DHA [Concomitant]
     Indication: Product used for unknown indication
     Dosage: ONCE A DAY
     Route: 065
  5. LISINOPRIL [Concomitant]
     Active Substance: LISINOPRIL
     Indication: Product used for unknown indication
     Dosage: 10 MG DAILY
     Route: 048
     Dates: start: 20240305
  6. MIRALAX [Concomitant]
     Active Substance: POLYETHYLENE GLYCOL 3350
     Indication: Constipation
     Route: 065
  7. MUCINEX SINUS-MAX CONGESTION [Concomitant]
     Indication: Nasopharyngitis
     Route: 065
  8. SOLU-CORTEF [Concomitant]
     Active Substance: HYDROCORTISONE SODIUM SUCCINATE
     Indication: Emergency care
     Route: 065
  9. VILTEPSO [Concomitant]
     Active Substance: VILTOLARSEN
     Indication: Product used for unknown indication
     Dosage: ONCE WEEKLY
     Route: 042
     Dates: start: 20240607
  10. VITAMIN D [Concomitant]
     Active Substance: VITAMIN D NOS
     Indication: Product used for unknown indication
     Dosage: 2000 UNITS DAILY
     Route: 065
  11. VITAMIN D [Concomitant]
     Active Substance: VITAMIN D NOS
     Dosage: 1000 UNITS/DAY
     Route: 048
  12. ZOFRAN [Concomitant]
     Active Substance: ONDANSETRON HYDROCHLORIDE
     Indication: Nausea
     Route: 065
  13. EPIPEN [Concomitant]
     Active Substance: EPINEPHRINE
     Indication: Product used for unknown indication
     Route: 030
     Dates: start: 20211012
  14. MINERALS\VITAMINS [Concomitant]
     Active Substance: MINERALS\VITAMINS
     Indication: Product used for unknown indication
     Dosage: 1 TAB EVERY DAY
     Route: 048
  15. POLYETHYLENE GLYCOL 3350 [Concomitant]
     Active Substance: POLYETHYLENE GLYCOL 3350
     Indication: Constipation
     Route: 048
  16. DELTASONE [Concomitant]
     Active Substance: PREDNISONE
     Indication: Pyrexia
     Route: 048
     Dates: start: 20241025
  17. DELTASONE [Concomitant]
     Active Substance: PREDNISONE
     Indication: Surgery
  18. DELTASONE [Concomitant]
     Active Substance: PREDNISONE
     Indication: Diarrhoea
  19. DELTASONE [Concomitant]
     Active Substance: PREDNISONE
     Indication: Injury
  20. DELTASONE [Concomitant]
     Active Substance: PREDNISONE
     Indication: Anaesthesia
  21. DELTASONE [Concomitant]
     Active Substance: PREDNISONE
     Indication: Illness

REACTIONS (1)
  - Viral infection [Recovered/Resolved]

NARRATIVE: CASE EVENT DATE: 20241125
